FAERS Safety Report 6759860-1 (Version None)
Quarter: 2010Q2

REPORT INFORMATION
  Report Type: 
  Country: None (occurrence: None)
  Receive Date: 20100524
  Receipt Date: 20100126
  Transmission Date: 20101027
  Serious: No
  Sender: FDA-Public Use
  Company Number: 005931

PATIENT
  Sex: Male
  Weight: 89.4 kg

DRUGS (6)
  1. CIMZIA [Suspect]
     Indication: CROHN'S DISEASE
     Dosage: (400 MG SUBCUTANEOUS)
     Route: 058
  2. ASPIRIN [Concomitant]
  3. VITAMIN B-12 [Concomitant]
  4. FISH OIL [Concomitant]
  5. TYLENOL W/ CODEINE [Concomitant]
  6. SULFASALAZINE [Concomitant]

REACTIONS (1)
  - RASH [None]
